FAERS Safety Report 9638467 (Version 1)
Quarter: 2013Q4

REPORT INFORMATION
  Report Type: Spontaneous
  Country: IN (occurrence: IN)
  Receive Date: 20131022
  Receipt Date: 20131022
  Transmission Date: 20140711
  Serious: Yes (Life-Threatening)
  Sender: FDA-Public Use
  Company Number: IN-PFIZER INC-2013298996

PATIENT
  Age: 22 Year
  Sex: Male
  Weight: 75 kg

DRUGS (5)
  1. PROPOFOL [Suspect]
     Indication: ANAESTHESIA
     Dosage: 100 MG, UNK
  2. VECURONIUM BROMIDE [Suspect]
     Indication: ANAESTHESIA
     Dosage: 8 MG, UNK
  3. FENTANYL [Suspect]
     Indication: ANAESTHESIA
     Dosage: 100 UG, UNK
  4. ISOFLURANE [Suspect]
     Dosage: UNK
  5. OXYGEN [Concomitant]
     Indication: ANAESTHESIA

REACTIONS (1)
  - Hyperthermia malignant [Unknown]
